FAERS Safety Report 14411035 (Version 2)
Quarter: 2018Q1

REPORT INFORMATION
  Report Type: Spontaneous
  Country: US (occurrence: US)
  Receive Date: 20180119
  Receipt Date: 20180202
  Transmission Date: 20180509
  Serious: No
  Sender: FDA-Public Use
  Company Number: US-JNJFOC-20180103676

PATIENT
  Sex: Male
  Weight: 65.77 kg

DRUGS (5)
  1. STELARA [Suspect]
     Active Substance: USTEKINUMAB
     Indication: CROHN^S DISEASE
     Route: 058
     Dates: start: 20180101
  2. STELARA [Suspect]
     Active Substance: USTEKINUMAB
     Indication: CROHN^S DISEASE
     Dosage: LOADING DOSE, INTRAVENOUS
     Route: 058
     Dates: start: 20170913, end: 20170913
  3. STELARA [Suspect]
     Active Substance: USTEKINUMAB
     Indication: CROHN^S DISEASE
     Dosage: SYRINGE
     Route: 058
     Dates: start: 201710
  4. STELARA [Suspect]
     Active Substance: USTEKINUMAB
     Indication: CROHN^S DISEASE
     Route: 058
     Dates: start: 201711
  5. IRON [Concomitant]
     Active Substance: IRON
     Route: 065

REACTIONS (2)
  - Drug ineffective [Unknown]
  - Enteritis [Unknown]

NARRATIVE: CASE EVENT DATE: 2017
